FAERS Safety Report 8295456 (Version 9)
Quarter: 2015Q1

REPORT INFORMATION
  Report Type: Spontaneous
  Country: US (occurrence: US)
  Receive Date: 20111216
  Receipt Date: 20150204
  Transmission Date: 20150721
  Serious: Yes (Hospitalization)
  Sender: FDA-Public Use
  Company Number: US-GLAXOSMITHKLINE-A0939908A

PATIENT
  Age: 70 Year
  Sex: Female

DRUGS (16)
  1. LISINOPRIL. [Suspect]
     Active Substance: LISINOPRIL
     Indication: HYPERTENSION
     Dosage: UNK,U
     Route: 065
  2. OMEPRAZOLE. [Concomitant]
     Active Substance: OMEPRAZOLE
  3. LOSARTAN [Concomitant]
     Active Substance: LOSARTAN
  4. COREG CR [Suspect]
     Active Substance: CARVEDILOL PHOSPHATE
     Dosage: 10 MG, QD
     Route: 048
     Dates: end: 20141016
  5. SUPPLEMENT [Suspect]
     Active Substance: UNSPECIFIED INGREDIENT
     Indication: ARTHRALGIA
  6. BLOOD PRESSURE MEDICATION [Suspect]
     Active Substance: UNSPECIFIED INGREDIENT
     Indication: BLOOD PRESSURE ABNORMAL
     Route: 065
  7. ANESTHESIA [Suspect]
     Active Substance: UNSPECIFIED INGREDIENT
     Indication: SURGERY
     Dosage: UNK, U
     Route: 065
  8. ACIPHEX [Concomitant]
     Active Substance: RABEPRAZOLE SODIUM
  9. COREG CR [Suspect]
     Active Substance: CARVEDILOL PHOSPHATE
     Indication: HYPERTENSION
     Dosage: 20 MG, QD
     Route: 048
  10. CALCIUM CHANNEL BLOCKER [Suspect]
     Active Substance: UNSPECIFIED INGREDIENT
     Indication: BLOOD PRESSURE ABNORMAL
     Route: 065
  11. SYNTHROID [Concomitant]
     Active Substance: LEVOTHYROXINE SODIUM
  12. PROTON PUMP INHIBITOR [Suspect]
     Active Substance: UNSPECIFIED INGREDIENT
     Indication: PRODUCT USED FOR UNKNOWN INDICATION
  13. KLONOPIN [Suspect]
     Active Substance: CLONAZEPAM
     Indication: BLOOD PRESSURE ABNORMAL
     Route: 065
  14. BLOOD PRESSURE MEDICATION [Concomitant]
     Active Substance: UNSPECIFIED INGREDIENT
  15. UNKNOWN MEDICATION [Concomitant]
     Active Substance: UNSPECIFIED INGREDIENT
  16. FELODIPINE. [Concomitant]
     Active Substance: FELODIPINE

REACTIONS (18)
  - Blood pressure inadequately controlled [Not Recovered/Not Resolved]
  - Fatigue [Not Recovered/Not Resolved]
  - Elective surgery [Recovered/Resolved]
  - Rash [Not Recovered/Not Resolved]
  - Neck pain [Not Recovered/Not Resolved]
  - Blood pressure fluctuation [Not Recovered/Not Resolved]
  - Visual impairment [Not Recovered/Not Resolved]
  - Rash [Not Recovered/Not Resolved]
  - Drug ineffective [Unknown]
  - Headache [Not Recovered/Not Resolved]
  - Pruritus [Not Recovered/Not Resolved]
  - Pain in extremity [Not Recovered/Not Resolved]
  - Peripheral swelling [Not Recovered/Not Resolved]
  - Treatment noncompliance [Unknown]
  - Blood pressure increased [Not Recovered/Not Resolved]
  - Heart rate irregular [Unknown]
  - Heart rate decreased [Recovered/Resolved]
  - Muscle spasms [Not Recovered/Not Resolved]

NARRATIVE: CASE EVENT DATE: 201107
